FAERS Safety Report 22360341 (Version 1)
Quarter: 2023Q2

REPORT INFORMATION
  Report Type: Spontaneous
  Country: US (occurrence: None)
  Receive Date: 20230523
  Receipt Date: 20230523
  Transmission Date: 20230722
  Serious: No
  Sender: FDA-Public Use
  Company Number: None

PATIENT
  Sex: Female

DRUGS (5)
  1. HUMIRA [Suspect]
     Active Substance: ADALIMUMAB
     Indication: Rheumatoid arthritis
     Dosage: 1 PEN Q 2 WK SC INJECTION?
     Route: 058
     Dates: start: 20230523
  2. METHOTREXATE [Concomitant]
  3. FOLIC ACID [Concomitant]
  4. PREDNISONE [Concomitant]
     Active Substance: PREDNISONE
  5. RINVOQ [Concomitant]
     Active Substance: UPADACITINIB

REACTIONS (2)
  - Drug ineffective [None]
  - Pain [None]
